FAERS Safety Report 19401658 (Version 2)
Quarter: 2022Q3

REPORT INFORMATION
  Report Type: Spontaneous
  Country: FR (occurrence: FR)
  Receive Date: 20210611
  Receipt Date: 20220712
  Transmission Date: 20221027
  Serious: Yes (Death, Hospitalization)
  Sender: FDA-Public Use
  Company Number: FR-JNJFOC-20210613180

PATIENT
  Sex: Female

DRUGS (1)
  1. ERDAFITINIB [Suspect]
     Active Substance: ERDAFITINIB
     Indication: Product used for unknown indication
     Dosage: THE TREATMENT WAS SUSPENDED FOR ONE WEEK IN MAR-2021 AND THEN STOPPED
     Route: 065
     Dates: start: 20201119

REACTIONS (3)
  - Death [Fatal]
  - Liver disorder [Recovered/Resolved]
  - Mucosal inflammation [Unknown]

NARRATIVE: CASE EVENT DATE: 20210320
